FAERS Safety Report 7497894-2 (Version None)
Quarter: 2011Q2

REPORT INFORMATION
  Report Type: 
  Country: None (occurrence: None)
  Receive Date: 20110524
  Receipt Date: 20110511
  Transmission Date: 20111010
  Serious: Yes (Hospitalization)
  Sender: FDA-Public Use
  Company Number: US-BIOGENIDEC-2011BI001957

PATIENT
  Age: 54 Year
  Sex: Female
  Weight: 86 kg

DRUGS (8)
  1. CALCIUM WITH D [Concomitant]
  2. REQUIP [Concomitant]
  3. TYLENOL (CAPLET) [Concomitant]
  4. TYSABRI [Suspect]
     Indication: MULTIPLE SCLEROSIS
     Route: 042
     Dates: start: 20090226
  5. PROVIGIL [Concomitant]
  6. MULTI-VITAMINS [Concomitant]
  7. VITAMIN B-12 [Concomitant]
  8. PAXIL [Concomitant]
     Route: 048

REACTIONS (1)
  - OBESITY [None]
